FAERS Safety Report 17780721 (Version 1)
Quarter: 2020Q2

REPORT INFORMATION
  Report Type: Spontaneous
  Country: NL (occurrence: NL)
  Receive Date: 20200513
  Receipt Date: 20200513
  Transmission Date: 20200714
  Serious: Yes (Hospitalization)
  Sender: FDA-Public Use
  Company Number: NL-MYLANLABS-2020M1046154

PATIENT
  Sex: Female
  Weight: 69.2 kg

DRUGS (9)
  1. IMATINIB. [Interacting]
     Active Substance: IMATINIB MESYLATE
     Indication: GASTROINTESTINAL STROMAL TUMOUR
     Dosage: 400 MILLIGRAM, QD (1X PER DAG 1 STUK)
     Dates: start: 20200213, end: 20200408
  2. PARACETAMOL [Concomitant]
     Active Substance: ACETAMINOPHEN
     Dosage: TABLET, 500 MG (MILLIGRAM)
  3. FENETICILLINA [Concomitant]
     Dosage: CAPSULE, 250 MG (MILLIGRAM)
  4. METFORMINE                         /00082701/ [Concomitant]
     Active Substance: METFORMIN HYDROCHLORIDE
     Dosage: TABLET, 500 MG (MILLIGRAM)
  5. SOTALOL. [Concomitant]
     Active Substance: SOTALOL
     Dosage: TABLET, 80 MG (MILLIGRAM)
  6. AMLODIPINE [Concomitant]
     Active Substance: AMLODIPINE BESYLATE
     Dosage: TABLET, 5 MG (MILLIGRAM)
  7. ROSUVASTATIN. [Suspect]
     Active Substance: ROSUVASTATIN
     Indication: DISEASE RISK FACTOR
     Dosage: 20 MILLIGRAM, QD (1X PER DAG 1 STUK)
     Dates: start: 202002, end: 20200408
  8. FOSINOPRIL [Concomitant]
     Active Substance: FOSINOPRIL
     Dosage: TABLET, 10 MG (MILLIGRAM)
  9. ACENOCOUMAROL [Interacting]
     Active Substance: ACENOCOUMAROL
     Indication: PRODUCT USED FOR UNKNOWN INDICATION
     Dosage: VOLGENS VOORSCHRIFT THROMBOSEDIENST, MEESTAL 2 OF 3MG

REACTIONS (4)
  - Muscle haemorrhage [Not Recovered/Not Resolved]
  - Muscle spasms [Not Recovered/Not Resolved]
  - International normalised ratio increased [Not Recovered/Not Resolved]
  - Drug interaction [Not Recovered/Not Resolved]
